FAERS Safety Report 9219691 (Version 1)
Quarter: 2013Q2

REPORT INFORMATION
  Report Type: Spontaneous
  Country: US (occurrence: US)
  Receive Date: 20130409
  Receipt Date: 20130409
  Transmission Date: 20140414
  Serious: No
  Sender: FDA-Public Use
  Company Number: US-PFIZER INC-2013107463

PATIENT
  Age: 38 Year
  Sex: Female
  Weight: 58.96 kg

DRUGS (3)
  1. ZYVOX [Suspect]
     Indication: STAPHYLOCOCCAL INFECTION
     Dosage: 600 MG, 2X/DAY
     Route: 048
     Dates: start: 20130308, end: 20130327
  2. CLINDAMYCIN [Concomitant]
     Dosage: 300 MG, 3X/DAY
     Route: 048
  3. BACTRIM [Concomitant]
     Dosage: 800/160 MG, 2X/DAY
     Route: 048

REACTIONS (1)
  - Headache [Unknown]
